FAERS Safety Report 5774343-3 (Version None)
Quarter: 2008Q2

REPORT INFORMATION
  Report Type: 
  Country: None (occurrence: None)
  Receive Date: 20080616
  Receipt Date: 20080609
  Transmission Date: 20081010
  Serious: Yes (Hospitalization, Other)
  Sender: FDA-Public Use
  Company Number: PHHY2008CA06007

PATIENT
  Sex: Male

DRUGS (8)
  1. SANDOSTATIN LAR [Suspect]
     Indication: NEUROENDOCRINE TUMOUR
     Dosage: 40 MG EVERY 4 WEEKS
     Route: 030
     Dates: start: 20050520
  2. WARFARIN [Concomitant]
     Dosage: UNK, QD
  3. BISOPROLOL FUMARATE [Concomitant]
  4. LASIX [Concomitant]
  5. MONOCARD [Concomitant]
  6. VITAMIN CAP [Concomitant]
     Dosage: UNK, QD
  7. GRAPE SEED EXTRACT [Concomitant]
  8. PHYTO IMMUNE [Concomitant]

REACTIONS (6)
  - CARDIAC PACEMAKER INSERTION [None]
  - ELECTROCARDIOGRAM AMBULATORY [None]
  - HEART RATE IRREGULAR [None]
  - LOSS OF CONSCIOUSNESS [None]
  - SICK SINUS SYNDROME [None]
  - SYNCOPE VASOVAGAL [None]
